FAERS Safety Report 4485107-5 (Version None)
Quarter: 2004Q4

REPORT INFORMATION
  Report Type: 
  Country: None (occurrence: None)
  Receive Date: 20041026
  Receipt Date: 20031013
  Transmission Date: 20050328
  Serious: No
  Sender: FDA-Public Use
  Company Number: US-BRISTOL-MYERS SQUIBB COMPANY-12409439

PATIENT
  Age: 75 Year
  Sex: Male
  Weight: 75 kg

DRUGS (11)
  1. GLUCOPHAGE XR [Suspect]
     Indication: DIABETES MELLITUS NON-INSULIN-DEPENDENT
     Route: 048
  2. AMARYL [Concomitant]
  3. ALLOPURINOL [Concomitant]
  4. LEVOXYL [Concomitant]
  5. LISINOPRIL [Concomitant]
  6. CITRUCEL [Concomitant]
  7. SENOKOT [Concomitant]
  8. ZOCOR [Concomitant]
  9. IBUPROFEN [Concomitant]
  10. ASPIRIN [Concomitant]
  11. VITAMIN B COMPLEX CAP [Concomitant]

REACTIONS (1)
  - BLOOD GLUCOSE INCREASED [None]
